FAERS Safety Report 25315470 (Version 2)
Quarter: 2025Q3

REPORT INFORMATION
  Report Type: Report from Study
  Country: US (occurrence: EU)
  Receive Date: 20250514
  Receipt Date: 20250803
  Transmission Date: 20251021
  Serious: Yes (Hospitalization)
  Sender: ALEXION PHARMACEUTICALS
  Company Number: 202504USA021141US

PATIENT
  Sex: Female

DRUGS (1)
  1. OLAPARIB [Suspect]
     Active Substance: OLAPARIB
     Indication: Pancreatic carcinoma
     Dosage: 200 MILLIGRAM, BID
     Dates: start: 202503, end: 20250305

REACTIONS (2)
  - Diarrhoea [Unknown]
  - Full blood count abnormal [Unknown]
